FAERS Safety Report 24659663 (Version 1)
Quarter: 2024Q4

REPORT INFORMATION
  Report Type: Spontaneous
  Country: FR (occurrence: FR)
  Receive Date: 20241125
  Receipt Date: 20241125
  Transmission Date: 20250114
  Serious: Yes (Hospitalization, Other)
  Sender: BRISTOL-MYERS SQUIBB COMPANY
  Company Number: None

PATIENT
  Age: 63 Year
  Sex: Female

DRUGS (2)
  1. VIDAZA [Suspect]
     Active Substance: AZACITIDINE
     Indication: Myelofibrosis
     Route: 058
     Dates: start: 20241004, end: 20241007
  2. VENETOCLAX [Suspect]
     Active Substance: VENETOCLAX
     Indication: Myelofibrosis
     Route: 058
     Dates: start: 20241004, end: 20241014

REACTIONS (2)
  - Capillary leak syndrome [Not Recovered/Not Resolved]
  - Off label use [Unknown]

NARRATIVE: CASE EVENT DATE: 20241101
